FAERS Safety Report 6727744-0 (Version None)
Quarter: 2010Q2

REPORT INFORMATION
  Report Type: 
  Country: None (occurrence: None)
  Receive Date: 20100514
  Receipt Date: 20100514
  Transmission Date: 20101027
  Serious: Yes (Hospitalization)
  Sender: FDA-Public Use
  Company Number: None

PATIENT
  Age: 58 Year
  Sex: Male
  Weight: 108.8633 kg

DRUGS (8)
  1. TRILIPIX [Suspect]
     Indication: HYPERLIPIDAEMIA
     Dosage: DAYS
     Dates: start: 20100508, end: 20100511
  2. METFORMIN HYDROCHLORIDE [Concomitant]
  3. LEVOTHYROXINE SODIUM [Concomitant]
  4. COLCHINE [Concomitant]
  5. ASPIRIN [Concomitant]
  6. ALLOPURINOL [Concomitant]
  7. ALPRAZO [Concomitant]
  8. PREVACID [Concomitant]

REACTIONS (1)
  - RHABDOMYOLYSIS [None]
